FAERS Safety Report 6708010-6 (Version None)
Quarter: 2010Q2

REPORT INFORMATION
  Report Type: 
  Country: None (occurrence: None)
  Receive Date: 20100503
  Receipt Date: 20090224
  Transmission Date: 20101027
  Serious: Yes (Other)
  Sender: FDA-Public Use
  Company Number: DE-BAYER-200913625GPV

PATIENT
  Age: 41 Year
  Sex: Female
  Weight: 55 kg

DRUGS (1)
  1. BETAFERON [Suspect]
     Route: 058
     Dates: start: 20090125, end: 20090205

REACTIONS (4)
  - HEART RATE INCREASED [None]
  - MUSCLE SPASMS [None]
  - OROPHARYNGEAL SPASM [None]
  - SLEEP DISORDER [None]
